FAERS Safety Report 4791762-2 (Version None)
Quarter: 2005Q4

REPORT INFORMATION
  Report Type: 
  Country: None (occurrence: None)
  Receive Date: 20051005
  Receipt Date: 20050920
  Transmission Date: 20060501
  Serious: Yes (Hospitalization)
  Sender: FDA-Public Use
  Company Number: 2005-01360

PATIENT
  Age: 18 Year
  Sex: Male

DRUGS (2)
  1. MENACTRA (MENIGOCOCCAL A, C, Y + W135  (D CONJ.) VACCINE) [Suspect]
     Indication: IMMUNISATION
     Dosage: I.M.
     Route: 030
     Dates: start: 20050610
  2. TUBERSOL [Suspect]
     Indication: TUBERCULIN TEST
     Dosage: I.D.
     Route: 026
     Dates: start: 20050610

REACTIONS (1)
  - GUILLAIN-BARRE SYNDROME [None]
